FAERS Safety Report 6748901-3 (Version None)
Quarter: 2010Q2

REPORT INFORMATION
  Report Type: 
  Country: None (occurrence: None)
  Receive Date: 20100601
  Receipt Date: 20100525
  Transmission Date: 20101027
  Serious: Yes (Death)
  Sender: FDA-Public Use
  Company Number: US-CELGENEUS-163-21880-10050628

PATIENT
  Sex: Female

DRUGS (4)
  1. REVLIMID [Suspect]
     Indication: MULTIPLE MYELOMA
     Route: 048
     Dates: start: 20091001, end: 20100101
  2. REVLIMID [Suspect]
     Route: 048
     Dates: start: 20080301
  3. REVLIMID [Suspect]
     Route: 048
     Dates: start: 20080901
  4. REVLIMID [Suspect]
     Route: 048
     Dates: start: 20090501

REACTIONS (3)
  - CARDIAC FAILURE CONGESTIVE [None]
  - RENAL FAILURE [None]
  - RESPIRATORY FAILURE [None]
